FAERS Safety Report 18340417 (Version 3)
Quarter: 2021Q4

REPORT INFORMATION
  Report Type: Spontaneous
  Country: US (occurrence: US)
  Receive Date: 20201002
  Receipt Date: 20211110
  Transmission Date: 20220303
  Serious: Yes (Other)
  Sender: FDA-Public Use
  Company Number: US-PFIZER INC-2020374250

PATIENT
  Age: 58 Year
  Sex: Female

DRUGS (1)
  1. MEPERIDINE HYDROCHLORIDE [Suspect]
     Active Substance: MEPERIDINE HYDROCHLORIDE
     Indication: Abdominal pain
     Dosage: UNK (RECEIVED A TOTAL OF 1,875 MG OF RNEPERIDINE WITHIN ONE WEEK)
     Dates: start: 1981

REACTIONS (3)
  - Neurotoxicity [Unknown]
  - Generalised tonic-clonic seizure [Recovered/Resolved]
  - Myoclonus [Recovered/Resolved]
